FAERS Safety Report 9949064 (Version 2)
Quarter: 2014Q2

REPORT INFORMATION
  Report Type: Spontaneous
  Country: US (occurrence: US)
  Receive Date: 20140304
  Receipt Date: 20140408
  Transmission Date: 20141212
  Serious: Yes (Other)
  Sender: FDA-Public Use
  Company Number: US-PFIZER INC-2014057985

PATIENT
  Age: 65 Year
  Sex: Male

DRUGS (18)
  1. XALKORI [Suspect]
     Indication: NON-SMALL CELL LUNG CANCER
     Dosage: UNK MG, 2X/DAY
     Dates: start: 20130724
  2. XALKORI [Suspect]
     Dosage: 250 MG, 1 CAPSULE, TWICE  DAILY
     Route: 048
     Dates: start: 20140224
  3. TYLENOL [Concomitant]
     Indication: PAIN
     Dosage: 1000 MG, AS NEEDED
     Route: 048
  4. FRAGMIN [Concomitant]
     Dosage: 0.5 ML (EVERY 24 HOURS)
     Route: 058
     Dates: start: 20131112
  5. DECADRON [Concomitant]
     Dosage: 2 MG, 2X/DAY
     Route: 048
     Dates: start: 20131223, end: 20140328
  6. DECADRON [Concomitant]
     Dosage: 4 MG, 2X/DAY
     Route: 048
     Dates: start: 20130707
  7. DECADRON [Concomitant]
     Dosage: 4 MG, 2X/DAY (DAY BEFORE, THE DAY OF AND THE DAY AFTER TREATMENT. TAKE EVENING DOSE PRIOR TO 6PM)
     Route: 048
     Dates: start: 20131015
  8. COLACE [Concomitant]
     Dosage: 100 MG  TWICE DAILY
     Route: 048
     Dates: start: 20131223
  9. NEURONTIN [Concomitant]
     Dosage: 100 MG, 3X/DAY
     Route: 048
     Dates: start: 20130703
  10. ATIVAN [Concomitant]
     Indication: NAUSEA
     Dosage: 0.5 MG, AS NEEDED (3 TIMES DAILY)
     Route: 048
     Dates: start: 20131203
  11. ATIVAN [Concomitant]
     Indication: VOMITING
  12. ZOFRAN [Concomitant]
     Indication: NAUSEA
     Dosage: 8 MG, PRN (EVERY 8 HOURS)
     Route: 048
     Dates: start: 20131015
  13. ROXICODONE [Concomitant]
     Indication: PAIN
     Dosage: 5 MG, AS NEEDED, 1-2 TABLETS BY MOUTH EVERY 6 HOURS
     Route: 048
     Dates: start: 20140224
  14. COMPAZINE [Concomitant]
     Indication: NAUSEA
     Dosage: 10 MG, AS NEEDED (1 TABLET BY MOUTH EVERY 6 HOURS)
     Route: 048
     Dates: start: 20131015
  15. SENOKOT [Concomitant]
     Dosage: 8.6 MG, (TAKE 2 TABLETS BY MOUTH NIGHTLY AT BEDTIME)
     Route: 048
     Dates: start: 20130707
  16. AVASTIN [Concomitant]
     Dosage: UNK, (905 MG IN NS 100 ML IVPB)
     Route: 042
     Dates: start: 20140325, end: 20140326
  17. NORMAL SALINE [Concomitant]
     Dosage: 1000 ML, 1X/DAY
     Route: 042
     Dates: start: 20140325, end: 20140326
  18. ALIMTA [Concomitant]
     Dosage: 500 MG/M2, UNK (850 MG IN NS 100 ML CHEMO IVPB)
     Route: 042
     Dates: start: 20140325, end: 20140326

REACTIONS (14)
  - Visual acuity reduced [Unknown]
  - Nausea [Unknown]
  - Vomiting [Recovered/Resolved]
  - Decreased appetite [Recovering/Resolving]
  - Cough [Unknown]
  - Asthenia [Unknown]
  - Diarrhoea [Unknown]
  - Constipation [Unknown]
  - Dizziness [Not Recovered/Not Resolved]
  - Chills [Unknown]
  - Weight fluctuation [Unknown]
  - Fatigue [Unknown]
  - Hypotension [Recovering/Resolving]
  - Dehydration [Unknown]
